FAERS Safety Report 12287086 (Version 2)
Quarter: 2016Q2

REPORT INFORMATION
  Report Type: Spontaneous
  Country: FI (occurrence: FI)
  Receive Date: 20160420
  Receipt Date: 20160606
  Transmission Date: 20160815
  Serious: Yes (Hospitalization)
  Sender: FDA-Public Use
  Company Number: FI-ABBVIE-16K-055-1607215-00

PATIENT
  Age: 14 Year
  Sex: Male
  Weight: 42 kg

DRUGS (5)
  1. HUMIRA [Suspect]
     Active Substance: ADALIMUMAB
     Indication: COLITIS
     Route: 058
     Dates: start: 201005, end: 20160305
  2. VITAMIN D [Concomitant]
     Active Substance: CHOLECALCIFEROL
     Indication: PRODUCT USED FOR UNKNOWN INDICATION
  3. IRON [Concomitant]
     Active Substance: IRON
     Indication: PRODUCT USED FOR UNKNOWN INDICATION
  4. PENTASA [Concomitant]
     Active Substance: MESALAMINE
     Indication: COLITIS
     Route: 048
     Dates: start: 2005
  5. PREDNISOLON [Suspect]
     Active Substance: PREDNISOLONE
     Indication: COLITIS
     Dosage: STARTED WITH 20MG IN THE MORNING WITH DECREASING DOSES FOR 6
     Route: 065
     Dates: start: 20160219, end: 201603

REACTIONS (3)
  - Colitis [Unknown]
  - Inguinal hernia [Recovering/Resolving]
  - Wound dehiscence [Recovering/Resolving]

NARRATIVE: CASE EVENT DATE: 2016
